FAERS Safety Report 17031319 (Version 1)
Quarter: 2019Q4

REPORT INFORMATION
  Report Type: Spontaneous
  Country: US (occurrence: US)
  Receive Date: 20191011
  Receipt Date: 20191011
  Transmission Date: 20200122
  Serious: Yes (Life-Threatening, Hospitalization, Disabling, Other)
  Sender: FDA-Public Use
  Company Number: None

PATIENT
  Age: 26 Year
  Sex: Female
  Weight: 136.08 kg

DRUGS (1)
  1. DEPAKOTE [Suspect]
     Active Substance: DIVALPROEX SODIUM
     Indication: SCHIZOAFFECTIVE DISORDER BIPOLAR TYPE
     Dosage: ?          QUANTITY:500 ML MILLILITRE(S);?
     Route: 048
     Dates: start: 20050101, end: 20120705

REACTIONS (6)
  - Product quality issue [None]
  - Memory impairment [None]
  - Imprisonment [None]
  - Malaise [None]
  - Drug dependence [None]
  - Leiomyoma [None]
